FAERS Safety Report 19190570 (Version 1)
Quarter: 2021Q2

REPORT INFORMATION
  Report Type: Spontaneous
  Country: AR (occurrence: AR)
  Receive Date: 20210428
  Receipt Date: 20210428
  Transmission Date: 20210717
  Serious: Yes (Other)
  Sender: FDA-Public Use
  Company Number: AR-PFIZER INC-2020351554

PATIENT
  Age: 59 Year
  Sex: Female

DRUGS (2)
  1. XELJANZ [Suspect]
     Active Substance: TOFACITINIB CITRATE
     Dosage: 5 MG, 2X/DAY
  2. XELJANZ [Suspect]
     Active Substance: TOFACITINIB CITRATE
     Indication: RHEUMATOID ARTHRITIS
     Dosage: 5 MG, 2X/DAY
     Dates: start: 20160811

REACTIONS (9)
  - Intraocular pressure increased [Unknown]
  - Dysstasia [Not Recovered/Not Resolved]
  - Eye injury [Unknown]
  - Fall [Unknown]
  - Visual impairment [Unknown]
  - Intentional product misuse [Unknown]
  - Incorrect dose administered [Unknown]
  - Rotator cuff syndrome [Not Recovered/Not Resolved]
  - Pain [Not Recovered/Not Resolved]
